FAERS Safety Report 7152055-1 (Version None)
Quarter: 2010Q4

REPORT INFORMATION
  Report Type: 
  Country: None (occurrence: None)
  Receive Date: 20101212
  Receipt Date: 20101129
  Transmission Date: 20110411
  Serious: Yes (Life-Threatening, Hospitalization)
  Sender: FDA-Public Use
  Company Number: DE-MYLANLABS-2009S1000666

PATIENT
  Age: 66 Year
  Sex: Female

DRUGS (7)
  1. AMOXICILLIN [Suspect]
     Indication: GASTRITIS BACTERIAL
     Route: 048
     Dates: start: 20080731, end: 20080806
  2. CLARITHROMYCIN [Suspect]
     Indication: GASTRITIS BACTERIAL
     Route: 048
     Dates: start: 20080731, end: 20080806
  3. SPIRONOLACTONE [Suspect]
     Indication: ASCITES
     Route: 048
     Dates: start: 20080101, end: 20080829
  4. ALLOPURINOL [Concomitant]
     Indication: BLOOD URIC ACID INCREASED
     Route: 048
     Dates: start: 20070101, end: 20080829
  5. PROPRANOLOL [Concomitant]
     Indication: HYPERTENSION
     Route: 048
     Dates: end: 20080829
  6. TOREM /01036501/ [Concomitant]
     Indication: ASCITES
     Route: 048
     Dates: start: 20080802, end: 20080829
  7. CORIC [Concomitant]
     Indication: HYPERTENSION
     Route: 048
     Dates: start: 20050101, end: 20080829

REACTIONS (1)
  - DIARRHOEA [None]
